FAERS Safety Report 24562920 (Version 1)
Quarter: 2024Q4

REPORT INFORMATION
  Report Type: Report from Study
  Country: NL (occurrence: NL)
  Receive Date: 20241030
  Receipt Date: 20241030
  Transmission Date: 20250115
  Serious: Yes (Death)
  Sender: ABBVIE
  Company Number: NL-ABBVIE-5923931

PATIENT
  Age: 77 Year
  Sex: Female

DRUGS (21)
  1. CARBIDOPA\LEVODOPA [Suspect]
     Active Substance: CARBIDOPA\LEVODOPA
     Indication: Parkinson^s disease
     Dosage: LOADD: 0.00ML; BIR:0.53ML/H; HIR: 0.53ML/H; LIR: 0.32ML/H; ED: 0.30ML; REMAINS AT 24 HOURS
     Route: 058
     Dates: start: 20240228, end: 20240305
  2. CARBIDOPA\LEVODOPA [Suspect]
     Active Substance: CARBIDOPA\LEVODOPA
     Dosage: LOADD: 1.20ML; BIR:0.64ML/H; HIR: 0.64ML/H; LIR: 0.35ML/H; ED: 0.30ML; REMAINS AT 24 HOURS
     Route: 058
     Dates: start: 20240716
  3. CARBIDOPA\LEVODOPA [Suspect]
     Active Substance: CARBIDOPA\LEVODOPA
     Dosage: LOADD: 0.00ML; BIR:0.55ML/H; HIR: 0.55ML/H; LIR: 0.32ML/H; ED: 0.30ML; REMAINS AT 24 HOURS
     Route: 058
     Dates: start: 20240305, end: 20240305
  4. CARBIDOPA\LEVODOPA [Suspect]
     Active Substance: CARBIDOPA\LEVODOPA
     Dosage: LOADD: 0.00ML; BIR:0.57ML/H; HIR: 0.57ML/H; LIR: 0.32ML/H; ED: 0.30ML; REMAINS AT 24 HOURS
     Route: 058
     Dates: start: 20240305, end: 20240325
  5. CARBIDOPA\LEVODOPA [Suspect]
     Active Substance: CARBIDOPA\LEVODOPA
     Dosage: LOADD: 0.00ML; BIR:0.62ML/H; HIR: 0.62ML/H; LIR: 0.35ML/H; ED: 0.30ML; REMAINS AT 24 HOURS
     Route: 058
     Dates: start: 20240415, end: 20240507
  6. CARBIDOPA\LEVODOPA [Suspect]
     Active Substance: CARBIDOPA\LEVODOPA
     Dosage: LOADD: 1.20ML; BIR:0.64ML/H; HIR: 0.64ML/H; LIR: 0.35ML/H; ED: 0.30ML; REMAINS AT 24 HOURS
     Route: 058
     Dates: start: 20240507, end: 20240716
  7. CARBIDOPA\LEVODOPA [Suspect]
     Active Substance: CARBIDOPA\LEVODOPA
     Dosage: LOADD: 1.20ML; BIR:0.43ML/H; HIR: 0.43ML/H; LIR: 0.23ML/H; ED: 0.20ML; REMAINS AT 24 HOURS
     Route: 058
     Dates: start: 20240207, end: 20240208
  8. CARBIDOPA\LEVODOPA [Suspect]
     Active Substance: CARBIDOPA\LEVODOPA
     Dosage: LOADD: 0.00ML; BIR:0.62ML/H; HIR: 0.62ML/H; LIR: 0.35ML/H; ED: 0.30ML; REMAINS AT 24 HOURS
     Route: 058
     Dates: start: 20240507, end: 20240507
  9. CARBIDOPA\LEVODOPA [Suspect]
     Active Substance: CARBIDOPA\LEVODOPA
     Dosage: LOADD: 0.00ML; BIR:0.49ML/H; HIR: 0.49ML/H; LIR: 0.28ML/H; ED: 0.30ML; REMAINS AT 24 HOURS
     Route: 058
     Dates: start: 20240214, end: 20240219
  10. CARBIDOPA\LEVODOPA [Suspect]
     Active Substance: CARBIDOPA\LEVODOPA
     Dosage: LOADD:1.2ML; BIR:0.45ML/H; LIR:0.23ML/H; ED: 0.10ML; REMAINS AT 24 HOURS
     Route: 058
     Dates: start: 20240205, end: 20240206
  11. CARBIDOPA\LEVODOPA [Suspect]
     Active Substance: CARBIDOPA\LEVODOPA
     Dosage: LOADD: 1.20ML; BIR:0.43ML/H; HIR: 0.43ML/H; LIR: 0.21ML/H; ED: 0.10ML; REMAINS AT 24 HOURS
     Route: 058
     Dates: start: 20240206, end: 20240207
  12. CARBIDOPA\LEVODOPA [Suspect]
     Active Substance: CARBIDOPA\LEVODOPA
     Dosage: BIR:0.49ML/H; LIR: 0.28ML/H; ED: 0.30ML; REMAINS AT 24 HOURS
     Route: 058
     Dates: start: 20240219, end: 20240219
  13. CARBIDOPA\LEVODOPA [Suspect]
     Active Substance: CARBIDOPA\LEVODOPA
     Dosage: LOADD: 0.00ML; BIR:0.59ML/H; HIR: 0.59ML/H; LIR: 0.34ML/H; ED: 0.30ML; REMAINS AT 24 HOURS
     Route: 058
     Dates: start: 20240325, end: 20240408
  14. CARBIDOPA\LEVODOPA [Suspect]
     Active Substance: CARBIDOPA\LEVODOPA
     Dosage: LOADD: 0.00ML; BIR:0.60ML/H; HIR: 0.60ML/H; LIR: 0.35ML/H; ED: 0.30ML; REMAINS AT 24 HOURS
     Route: 058
     Dates: start: 20240408, end: 20240415
  15. CARBIDOPA\LEVODOPA [Suspect]
     Active Substance: CARBIDOPA\LEVODOPA
     Dosage: LOADD: 0.00ML; BIR:0.51ML/H; HIR: 0.51ML/H; LIR: 0.30ML/H; ED: 0.30ML; REMAINS AT 24 HOURS
     Route: 058
     Dates: start: 20240219, end: 20240228
  16. CARBIDOPA\LEVODOPA [Suspect]
     Active Substance: CARBIDOPA\LEVODOPA
     Dosage: LOADD: 1.20ML; BIR:0.49ML/H; HIR: 0.49ML/H; LIR: 0.26ML/H; ED: 0.30ML; REMAINS AT 24 HOURS
     Route: 058
     Dates: start: 20240208, end: 20240214
  17. POLYETHYLENE GLYCOLS [Concomitant]
     Active Substance: POLYETHYLENE GLYCOLS
     Indication: Laxative supportive care
  18. CITALOPRAM [Concomitant]
     Active Substance: CITALOPRAM
     Indication: Depression
  19. RIVOTRIL [Concomitant]
     Active Substance: CLONAZEPAM
     Indication: Muscle relaxant therapy
     Dosage: 1 X 0.75MG PER DAY
  20. Rennie [Concomitant]
     Indication: Gastrointestinal disorder
     Dosage: 3-4 X PER DAY
  21. OXAZEPAM [Concomitant]
     Active Substance: OXAZEPAM
     Indication: Restlessness
     Dosage: TIME INTERVAL: AS NECESSARY: WITH UNREST 1-3 TABLETS PER DAY

REACTIONS (2)
  - Euthanasia [Fatal]
  - Drug ineffective [Unknown]

NARRATIVE: CASE EVENT DATE: 20240101
